FAERS Safety Report 22342014 (Version 4)
Quarter: 2023Q2

REPORT INFORMATION
  Report Type: Report from Study
  Country: CO (occurrence: CO)
  Receive Date: 20230518
  Receipt Date: 20230626
  Transmission Date: 20230721
  Serious: Yes (Hospitalization, Other)
  Sender: FDA-Public Use
  Company Number: CO-ABBVIE-4308092

PATIENT
  Sex: Male

DRUGS (6)
  1. VENCLEXTA [Suspect]
     Active Substance: VENETOCLAX
     Indication: Acute myeloid leukaemia
     Dosage: FORM STRENGTH: 100 MILLIGRAM?2023 WAS THE CESSATION DATE OF  EPISTAXIS
     Route: 048
     Dates: start: 20220901, end: 20230604
  2. VENCLEXTA [Suspect]
     Active Substance: VENETOCLAX
     Indication: Acute myeloid leukaemia
     Dosage: FORM STRENGTH: 100 MILLIGRAM
     Route: 048
     Dates: start: 20220901, end: 20220927
  3. VENCLEXTA [Suspect]
     Active Substance: VENETOCLAX
     Indication: Acute myeloid leukaemia
     Dosage: FORM STRENGTH:100 MILLIGRAM
     Route: 048
     Dates: start: 20220901, end: 20230604
  4. AZACITIDINE [Suspect]
     Active Substance: AZACITIDINE
     Indication: Acute myeloid leukaemia
     Route: 065
     Dates: end: 202302
  5. AZACITIDINE [Suspect]
     Active Substance: AZACITIDINE
     Indication: Acute myeloid leukaemia
     Dosage: NOT REPORTED/FIRST ADMIN DATE:2023
     Route: 042
  6. AZACITIDINE [Suspect]
     Active Substance: AZACITIDINE
     Indication: Acute myeloid leukaemia
     Dosage: NOT REPORTED/LAST ADMIN DATE:2023
     Route: 042
     Dates: start: 20230216

REACTIONS (21)
  - Acute myeloid leukaemia recurrent [Recovering/Resolving]
  - Vomiting [Unknown]
  - Idiosyncratic drug reaction [Not Recovered/Not Resolved]
  - Epistaxis [Recovered/Resolved]
  - Oedema peripheral [Recovering/Resolving]
  - Bacterial infection [Not Recovered/Not Resolved]
  - Immunodeficiency [Not Recovered/Not Resolved]
  - Gait disturbance [Unknown]
  - Pyrexia [Not Recovered/Not Resolved]
  - Hypertension [Recovering/Resolving]
  - Platelet count decreased [Not Recovered/Not Resolved]
  - Adverse drug reaction [Unknown]
  - Abdominal pain upper [Unknown]
  - Swelling [Recovering/Resolving]
  - Asthenia [Unknown]
  - Blood pressure abnormal [Not Recovered/Not Resolved]
  - Hypertension [Recovering/Resolving]
  - Feeling abnormal [Recovering/Resolving]
  - Dizziness [Unknown]
  - Viral infection [Unknown]
  - Epistaxis [Recovered/Resolved]

NARRATIVE: CASE EVENT DATE: 20230101
